FAERS Safety Report 7731728-3 (Version None)
Quarter: 2011Q3

REPORT INFORMATION
  Report Type: 
  Country: None (occurrence: None)
  Receive Date: 20110906
  Receipt Date: 20110826
  Transmission Date: 20111222
  Serious: Yes (Hospitalization, Other)
  Sender: FDA-Public Use
  Company Number: PHHY2010US36023

PATIENT
  Sex: Female

DRUGS (12)
  1. LIPITOR [Concomitant]
     Dosage: UNK UKN, UNK
  2. BUMEX [Concomitant]
     Dosage: 1 MG, QD
     Route: 048
  3. NEURONTIN [Concomitant]
     Dosage: 300 MG, TID
     Route: 048
  4. AM LACTIN [Concomitant]
     Indication: RASH
     Dosage: UNK UKN, UNK
  5. PLAVIX [Concomitant]
     Dosage: 75 MG, QD
     Route: 048
  6. ALLOPURINOL [Concomitant]
     Dosage: 300 MG, DAILY
     Route: 048
  7. PRANDIN [Concomitant]
     Dosage: UNK UKN, UNK
  8. GLEEVEC [Suspect]
     Indication: CHRONIC MYELOID LEUKAEMIA
     Dosage: 400 MG, QD
     Route: 048
     Dates: start: 20100215
  9. ASPIRIN [Concomitant]
     Dosage: 81 MG, QD
     Route: 048
  10. ATENOLOL [Concomitant]
     Dosage: 12.5 MG, QD
     Route: 048
  11. LANTUS [Concomitant]
     Dosage: 42 U, QD
     Route: 058
  12. NITROGLYCERIN [Concomitant]
     Dosage: 0.4 MG, PRN
     Route: 060

REACTIONS (12)
  - DRY SKIN [None]
  - DIARRHOEA [None]
  - BLOOD MAGNESIUM INCREASED [None]
  - CONSTIPATION [None]
  - RASH [None]
  - CHEST PAIN [None]
  - DYSPNOEA [None]
  - C-REACTIVE PROTEIN INCREASED [None]
  - BLOOD POTASSIUM DECREASED [None]
  - SKIN HAEMORRHAGE [None]
  - PLATELET COUNT DECREASED [None]
  - BLISTER [None]
